FAERS Safety Report 12723956 (Version 1)
Quarter: 2016Q3

REPORT INFORMATION
  Report Type: Spontaneous
  Country: US (occurrence: US)
  Receive Date: 20160908
  Receipt Date: 20160908
  Transmission Date: 20161109
  Serious: Yes (Other)
  Sender: FDA-Public Use
  Company Number: US-B.I. PHARMACEUTICALS,INC./RIDGEFIELD-2016-BI-57796BP

PATIENT
  Age: 81 Year
  Sex: Male

DRUGS (3)
  1. LIPITOR [Concomitant]
     Active Substance: ATORVASTATIN CALCIUM
     Indication: BLOOD CHOLESTEROL INCREASED
     Dosage: 20 MG
     Route: 048
  2. DULCOLAX STOOL SOFTENER [Suspect]
     Active Substance: DOCUSATE SODIUM
     Indication: CONSTIPATION
     Dosage: FORMULATION: LIQUID GEL
     Route: 048
     Dates: start: 20160823
  3. LISINOPRIL. [Concomitant]
     Active Substance: LISINOPRIL
     Indication: HYPERTENSION
     Dosage: 5 MG
     Route: 048

REACTIONS (4)
  - Constipation [Not Recovered/Not Resolved]
  - Prostate cancer [Unknown]
  - Gastrointestinal motility disorder [Not Recovered/Not Resolved]
  - Road traffic accident [Unknown]

NARRATIVE: CASE EVENT DATE: 20160823
